FAERS Safety Report 24724324 (Version 1)
Quarter: 2024Q4

REPORT INFORMATION
  Report Type: Spontaneous
  Country: US (occurrence: US)
  Receive Date: 20241212
  Receipt Date: 20241212
  Transmission Date: 20250114
  Serious: No
  Sender: ABBVIE
  Company Number: US-ABBVIE-6037343

PATIENT
  Age: 31 Year
  Sex: Female

DRUGS (1)
  1. SKYRIZI [Suspect]
     Active Substance: RISANKIZUMAB-RZAA
     Indication: Guttate psoriasis
     Route: 058
     Dates: start: 20240314

REACTIONS (2)
  - Guttate psoriasis [Recovering/Resolving]
  - Skin abrasion [Unknown]

NARRATIVE: CASE EVENT DATE: 20240801
